FAERS Safety Report 22238418 (Version 2)
Quarter: 2023Q2

REPORT INFORMATION
  Report Type: Other
  Country: US (occurrence: None)
  Receive Date: 20230421
  Receipt Date: 20230428
  Transmission Date: 20230721
  Serious: Yes (Other)
  Sender: FDA-Public Use
  Company Number: US-ROCHE-3331389

PATIENT
  Age: 50 Year
  Sex: Male
  Weight: 65.830 kg

DRUGS (5)
  1. OCREVUS [Suspect]
     Active Substance: OCRELIZUMAB
     Indication: Relapsing-remitting multiple sclerosis
     Dosage: DATE OF TREATMENT: 27/MAR/2023, 26/SEP/2022, 28/MAR/2022, 27/SEP/2021, 22/MAR/2021
     Route: 042
     Dates: start: 201706
  2. TRAZODONE [Concomitant]
     Active Substance: TRAZODONE HYDROCHLORIDE
     Dosage: 150 MG ORAL ONCE A DAY
  3. MUCINEX [Concomitant]
     Active Substance: GUAIFENESIN
     Indication: Lower respiratory tract infection
     Dates: start: 20230404, end: 20230410
  4. SINEX (UNITED STATES) [Concomitant]
     Route: 045
     Dates: start: 20230404, end: 20230410
  5. TECFIDERA [Concomitant]
     Active Substance: DIMETHYL FUMARATE

REACTIONS (3)
  - Lower respiratory tract infection [Recovered/Resolved]
  - Multiple sclerosis [Unknown]
  - COVID-19 [Unknown]

NARRATIVE: CASE EVENT DATE: 20221002
